FAERS Safety Report 6265944-7 (Version None)
Quarter: 2009Q3

REPORT INFORMATION
  Report Type: 
  Country: None (occurrence: None)
  Receive Date: 20090713
  Receipt Date: 20090707
  Transmission Date: 20100115
  Serious: Yes (Life-Threatening, Hospitalization, Other)
  Sender: FDA-Public Use
  Company Number: US-CELGENEUS-163-CCAZA-09051757

PATIENT
  Sex: Male
  Weight: 69.5 kg

DRUGS (36)
  1. AZACITIDINE INJECTABLE [Suspect]
     Route: 058
     Dates: start: 20090508, end: 20090514
  2. LEVOTHYROXINE SODIUM [Concomitant]
     Indication: HYPOTHYROIDISM
     Route: 048
     Dates: start: 20010101
  3. PRAVASTATIN [Concomitant]
     Route: 048
     Dates: start: 20020101
  4. EZETIMIBE [Concomitant]
     Route: 048
     Dates: start: 20020101
  5. TAMSULOSIN HCL [Concomitant]
     Route: 048
     Dates: start: 20040101
  6. FISH OIL [Concomitant]
     Route: 048
  7. COQ10 [Concomitant]
     Route: 048
  8. ASCORBIC ACID [Concomitant]
     Route: 048
  9. VITAMIN B COMPLEX CAP [Concomitant]
     Route: 048
  10. ASPIRIN [Concomitant]
     Indication: PROPHYLAXIS
     Route: 048
     Dates: start: 20090404
  11. CYCLOBENZAPRINE [Concomitant]
     Route: 048
     Dates: start: 20090401
  12. CYCLOBENZAPRINE [Concomitant]
     Indication: NECK PAIN
  13. BUTALBITAL [Concomitant]
     Indication: HEADACHE
     Dosage: 1-2 TABLETS
     Route: 048
     Dates: start: 20090301
  14. ALLEGRA [Concomitant]
     Indication: DRUG USE FOR UNKNOWN INDICATION
     Route: 048
     Dates: start: 20090501
  15. TRAMADOL [Concomitant]
     Indication: NECK PAIN
     Dosage: 1-2 TABLETS
     Route: 048
     Dates: start: 20090511
  16. TRAMADOL [Concomitant]
  17. ONDANSETRON [Concomitant]
     Indication: NAUSEA
     Route: 048
     Dates: start: 20090508
  18. ONDANSETRON [Concomitant]
     Indication: VOMITING
  19. WHOLE BLOOD [Concomitant]
     Indication: DRUG USE FOR UNKNOWN INDICATION
     Route: 051
  20. BROAD SPECTRUM ANTIBIOTICS [Concomitant]
     Indication: DRUG USE FOR UNKNOWN INDICATION
     Route: 065
     Dates: start: 20090501
  21. PLATELETS [Concomitant]
     Indication: THROMBOCYTOPENIA
     Route: 051
     Dates: start: 20090501
  22. PLATELETS [Concomitant]
     Indication: COAGULOPATHY
  23. FRESH FROZEN PLASMA [Concomitant]
     Indication: THROMBOCYTOPENIA
     Route: 051
     Dates: start: 20090501
  24. FRESH FROZEN PLASMA [Concomitant]
     Indication: COAGULOPATHY
  25. VITAMIN K [Concomitant]
     Indication: THROMBOCYTOPENIA
     Route: 065
     Dates: start: 20090501
  26. VITAMIN K [Concomitant]
     Indication: COAGULOPATHY
     Route: 051
     Dates: start: 20090601, end: 20090603
  27. VITAMIN K [Concomitant]
  28. FILGRASTIM [Concomitant]
     Indication: BLOOD COUNT ABNORMAL
     Dosage: 300-480MCG
     Route: 058
     Dates: start: 20090527
  29. FUROSEMIDE [Concomitant]
     Route: 048
     Dates: start: 20090524
  30. ALBUMIN (HUMAN) [Concomitant]
     Route: 065
     Dates: start: 20090524
  31. INSULIN [Concomitant]
     Dosage: 4-8 IU
     Route: 058
     Dates: start: 20090601
  32. PHOSPHORUS REPLACEMENT [Concomitant]
     Route: 065
     Dates: start: 20090601
  33. LEVAQUIN [Concomitant]
     Indication: INFECTION PROPHYLAXIS
     Route: 048
     Dates: start: 20090610
  34. HYDROXYZINE [Concomitant]
     Indication: RASH
     Dosage: 10-25MG
     Route: 048
     Dates: start: 20090601
  35. LORATADINE [Concomitant]
     Indication: RASH
     Route: 048
     Dates: start: 20090601
  36. ZYRTEC-D 12 HOUR [Concomitant]
     Indication: SINUSITIS
     Route: 048
     Dates: start: 20090511

REACTIONS (12)
  - ABDOMINAL DISTENSION [None]
  - CAECITIS [None]
  - CELLULITIS [None]
  - HYPERNATRAEMIA [None]
  - HYPONATRAEMIA [None]
  - HYPOXIA [None]
  - NEUTROPENIC COLITIS [None]
  - OEDEMA PERIPHERAL [None]
  - PLEURAL EFFUSION [None]
  - PNEUMONIA [None]
  - RASH [None]
  - RENAL FAILURE [None]
